FAERS Safety Report 9525951 (Version 1)
Quarter: 2013Q1

REPORT INFORMATION
  Report Type: Spontaneous
  Country: US (occurrence: None)
  Receive Date: 20130314
  Receipt Date: 20130314
  Transmission Date: 20140127
  Serious: No
  Sender: FDA-Public Use
  Company Number: 1301USA014816

PATIENT
  Age: 63 Year
  Sex: Female

DRUGS (3)
  1. PEG-INTRON (PEGINTERFERON ALFA-2B) POWDER FOR INJECTION [Suspect]
     Indication: CHRONIC HEPATITIS C
     Dates: start: 20130115
  2. RIBAVIRIN (RIBAVIRIN) CAPSULE [Suspect]
     Indication: CHRONIC HEPATITIS C
     Dates: start: 20130115
  3. VICTRELIS (BOCEPREVIR) CAPSULE [Suspect]
     Route: 048
     Dates: start: 20130213

REACTIONS (4)
  - Bone disorder [None]
  - Fatigue [None]
  - Respiratory disorder [None]
  - Insomnia [None]
